FAERS Safety Report 12345834 (Version 5)
Quarter: 2016Q3

REPORT INFORMATION
  Report Type: Spontaneous
  Country: GB (occurrence: GB)
  Receive Date: 20160509
  Receipt Date: 20160712
  Transmission Date: 20161109
  Serious: Yes (Other)
  Sender: FDA-Public Use
  Company Number: GB-BAXTER-2016BAX023263

PATIENT
  Sex: Male

DRUGS (1)
  1. PRISMASOL 4 [Suspect]
     Active Substance: ANHYDROUS DEXTROSE\LACTIC ACID\MAGNESIUM CHLORIDE\POTASSIUM CHLORIDE\SODIUM BICARBONATE\SODIUM CHLORIDE
     Indication: RENAL REPLACEMENT THERAPY
     Route: 010

REACTIONS (5)
  - Blood calcium increased [Unknown]
  - Thrombosis in device [Unknown]
  - Therapy non-responder [Unknown]
  - Haemorrhage [Unknown]
  - Creutzfeldt-Jakob disease [Unknown]
